FAERS Safety Report 18851363 (Version 2)
Quarter: 2021Q1

REPORT INFORMATION
  Report Type: Report from Study
  Country: US (occurrence: US)
  Receive Date: 20210205
  Receipt Date: 20210209
  Transmission Date: 20210420
  Serious: Yes (Hospitalization, Other)
  Sender: FDA-Public Use
  Company Number: US-BAUSCH-BL-2020-000201

PATIENT
  Age: 47 Year
  Sex: Female

DRUGS (1)
  1. XIFAXAN [Suspect]
     Active Substance: RIFAXIMIN
     Indication: HEPATIC ENCEPHALOPATHY
     Route: 048

REACTIONS (9)
  - Balance disorder [Unknown]
  - Abdominal pain [Unknown]
  - Varicose vein [Not Recovered/Not Resolved]
  - Hospitalisation [Unknown]
  - Pain in extremity [Unknown]
  - Renal disorder [Unknown]
  - Nausea [Unknown]
  - Product dose omission in error [Unknown]
  - Muscle spasms [Unknown]
